FAERS Safety Report 4333263-1 (Version None)
Quarter: 2004Q2

REPORT INFORMATION
  Report Type: 
  Country: None (occurrence: None)
  Receive Date: 20040405
  Receipt Date: 20040405
  Transmission Date: 20050107
  Serious: Yes (Hospitalization)
  Sender: FDA-Public Use
  Company Number: None

PATIENT
  Sex: Male
  Weight: 111.3581 kg

DRUGS (7)
  1. DOCETAXEL 80 MG/2ML AVENTIS [Suspect]
     Indication: PANCREATIC CARCINOMA
     Dosage: 65 MG/M2 EVERY 3 WE IV
     Route: 042
     Dates: start: 20040323, end: 20040323
  2. IRINOTECAN 100 MG/5ML PHARMACIA AND UPJOHN [Suspect]
     Indication: PANCREATIC CARCINOMA
     Dosage: 160 MG/M2 EVERY 3 WE IV
     Route: 042
     Dates: start: 20040323, end: 20040323
  3. COUMADIN [Concomitant]
  4. LANOXIN [Concomitant]
  5. ALLOPURINOL [Concomitant]
  6. CARDIZEM [Concomitant]
  7. PROTONIX [Concomitant]

REACTIONS (8)
  - ABDOMINAL PAIN [None]
  - BODY TEMPERATURE INCREASED [None]
  - DIARRHOEA [None]
  - FATIGUE [None]
  - NAUSEA [None]
  - NEUTROPENIA [None]
  - PAIN [None]
  - VOMITING [None]
